FAERS Safety Report 12822975 (Version 1)
Quarter: 2016Q4

REPORT INFORMATION
  Report Type: Spontaneous
  Country: US (occurrence: US)
  Receive Date: 20161007
  Receipt Date: 20161007
  Transmission Date: 20170207
  Serious: No
  Sender: FDA-Public Use
  Company Number: US-PFIZER INC-2016458979

PATIENT
  Age: 71 Year
  Sex: Female

DRUGS (18)
  1. VITAMIN D3 [Concomitant]
     Active Substance: CHOLECALCIFEROL
  2. FISH OIL [Concomitant]
     Active Substance: FISH OIL
  3. DULOXETINE. [Concomitant]
     Active Substance: DULOXETINE
  4. CASCARA SAGRADA /00143201/ [Concomitant]
     Active Substance: FRANGULA PURSHIANA BARK
  5. LASIX [Concomitant]
     Active Substance: FUROSEMIDE
  6. LEVOTHYROXINE /00068002/ [Concomitant]
     Active Substance: LEVOTHYROXINE
  7. ASPIRIN /00002701/ [Concomitant]
     Active Substance: ASPIRIN
  8. RESTASIS [Concomitant]
     Active Substance: CYCLOSPORINE
  9. VITAMIN C [Concomitant]
     Active Substance: ASCORBIC ACID
  10. POTASSIUM [Concomitant]
     Active Substance: POTASSIUM
  11. JAKAFI [Suspect]
     Active Substance: RUXOLITINIB
     Indication: MYELOFIBROSIS
     Dosage: 15 MG, 2X/DAY
     Route: 048
     Dates: start: 20140821
  12. ATENOLOL. [Concomitant]
     Active Substance: ATENOLOL
  13. EUFLEXXA [Concomitant]
     Active Substance: HYALURONATE SODIUM
  14. ADVIL [Suspect]
     Active Substance: IBUPROFEN
     Indication: HEADACHE
  15. ADVIL [Suspect]
     Active Substance: IBUPROFEN
     Indication: NECK PAIN
     Dosage: UNK
  16. VITAMIN E /00110501/ [Concomitant]
     Active Substance: TOCOPHEROL
     Dosage: UNK
  17. AMLODIPINE [Concomitant]
     Active Substance: AMLODIPINE BESYLATE
  18. MAGNESIUM [Concomitant]
     Active Substance: MAGNESIUM

REACTIONS (29)
  - Hot flush [Unknown]
  - Dyspnoea [Unknown]
  - Flatulence [Unknown]
  - Dental caries [Unknown]
  - Sinusitis [Unknown]
  - Musculoskeletal pain [Unknown]
  - Back pain [Unknown]
  - Neck pain [Unknown]
  - Increased tendency to bruise [Unknown]
  - Chills [Unknown]
  - Mobility decreased [Unknown]
  - Jaw disorder [Unknown]
  - Musculoskeletal chest pain [Unknown]
  - Hyperhidrosis [Unknown]
  - Laceration [Unknown]
  - Abdominal distension [Unknown]
  - Somnolence [Unknown]
  - Arthralgia [Unknown]
  - Gingival recession [Unknown]
  - Headache [Unknown]
  - Spinal disorder [Unknown]
  - Impaired healing [Unknown]
  - Petechiae [Unknown]
  - Dry mouth [Unknown]
  - Bone disorder [Unknown]
  - Fatigue [Unknown]
  - Myalgia [Unknown]
  - Bone pain [Unknown]
  - Skin discolouration [Unknown]

NARRATIVE: CASE EVENT DATE: 201509
